FAERS Safety Report 12385965 (Version 1)
Quarter: 2016Q2

REPORT INFORMATION
  Report Type: Spontaneous
  Country: US (occurrence: US)
  Receive Date: 20160519
  Receipt Date: 20160519
  Transmission Date: 20160815
  Serious: No
  Sender: FDA-Public Use
  Company Number: US-ENDO PHARMACEUTICALS INC.-2015-002076

PATIENT
  Age: 39 Year
  Sex: Female
  Weight: 65.83 kg

DRUGS (1)
  1. LORAZEPAM TABLETS 1MG [Suspect]
     Active Substance: LORAZEPAM
     Indication: ANXIETY
     Dosage: WHEN HEART RATE GOES UP
     Route: 065
     Dates: start: 20150707

REACTIONS (2)
  - Abdominal pain upper [Recovered/Resolved]
  - Dermatitis allergic [Recovered/Resolved]

NARRATIVE: CASE EVENT DATE: 20150707
